FAERS Safety Report 12654108 (Version 1)
Quarter: 2016Q3

REPORT INFORMATION
  Report Type: Spontaneous
  Country: US (occurrence: US)
  Receive Date: 20160816
  Receipt Date: 20160816
  Transmission Date: 20161109
  Serious: No
  Sender: FDA-Public Use
  Company Number: US-ASTRAZENECA-2016SE85575

PATIENT
  Age: 22369 Day
  Sex: Male
  Weight: 77.1 kg

DRUGS (9)
  1. PASSION FLOWER VINE [Concomitant]
     Indication: SLEEP DISORDER
     Dosage: GTT 40 TO 60 DROPS IN A SMALL AMOUNT OF WATER THREE TIMES DAILY
     Route: 048
     Dates: start: 201607
  2. REMERON [Concomitant]
     Active Substance: MIRTAZAPINE
     Indication: SLEEP DISORDER
     Dosage: UNKNOWN
     Route: 048
  3. QUETIAPINE FUMARATE. [Suspect]
     Active Substance: QUETIAPINE FUMARATE
     Indication: INSOMNIA
     Dosage: HALF OF A 50MG TABLET TO EQUAL 25MG
     Route: 048
     Dates: start: 20160728
  4. EFFEXOR [Concomitant]
     Active Substance: VENLAFAXINE HYDROCHLORIDE
     Indication: ANXIETY
     Dosage: 35 OR 37MG DAILY
     Route: 048
     Dates: start: 201607
  5. LEMON BALM BLEND [Concomitant]
     Indication: NERVOUS SYSTEM DISORDER
     Dosage: 1 SQUEEZE OF A DROPPER 2 TO 5 TIMES DAILY IN WATER
     Route: 048
     Dates: start: 201607
  6. TRAZODONE [Concomitant]
     Active Substance: TRAZODONE HYDROCHLORIDE
     Indication: INSOMNIA
     Route: 048
  7. LEXAPRO [Concomitant]
     Active Substance: ESCITALOPRAM OXALATE
     Indication: DEPRESSION
     Route: 048
     Dates: start: 201605
  8. MELATONIN [Concomitant]
     Active Substance: MELATONIN
     Indication: SLEEP DISORDER
     Route: 048
     Dates: start: 201607
  9. LORAZEPAM. [Concomitant]
     Active Substance: LORAZEPAM
     Indication: ANXIETY
     Dosage: 3 OR 4 TIMES DAILY AS NEEDED, 1 MG
     Route: 048
     Dates: start: 201605

REACTIONS (15)
  - Palpitations [Unknown]
  - Anxiety [Unknown]
  - Insomnia [Unknown]
  - Off label use [Unknown]
  - Intentional product misuse [Unknown]
  - Product use issue [Unknown]
  - Asthenia [Unknown]
  - Body temperature increased [Unknown]
  - Overdose [Unknown]
  - Blood cortisol increased [Unknown]
  - Hypersomnia [Recovered/Resolved]
  - Abnormal dreams [Unknown]
  - Balance disorder [Unknown]
  - Drug prescribing error [Unknown]
  - Hyperhidrosis [Unknown]

NARRATIVE: CASE EVENT DATE: 20160729
